FAERS Safety Report 7355359-2 (Version None)
Quarter: 2011Q1

REPORT INFORMATION
  Report Type: 
  Country: None (occurrence: None)
  Receive Date: 20110316
  Receipt Date: 20110310
  Transmission Date: 20110831
  Serious: Yes (Hospitalization)
  Sender: FDA-Public Use
  Company Number: GB-ROCHE-760010

PATIENT
  Sex: Female

DRUGS (22)
  1. LEFLUNOMIDE [Concomitant]
     Dates: start: 20101001
  2. GTN SPRAY [Concomitant]
     Indication: CHEST PAIN
     Route: 060
  3. TOCILIZUMAB [Suspect]
     Indication: SERONEGATIVE ARTHRITIS
     Route: 042
     Dates: start: 20101230
  4. FOLIC ACID [Concomitant]
  5. PROPRANOLOL [Concomitant]
  6. FERROUS FUMARATE [Concomitant]
  7. ASPIRIN [Concomitant]
  8. NAPROXEN [Concomitant]
  9. METHYLPREDNISOLONE [Concomitant]
  10. CEPHALEXIN [Concomitant]
  11. LEFLUNOMIDE [Concomitant]
     Dates: start: 20100801
  12. CLOPIDOGREL [Concomitant]
     Dosage: REPORTED AS CLOPIDGREL
  13. SIMVASTATIN [Concomitant]
  14. RITUXIMAB [Suspect]
     Dosage: WAS GIVEN A TOTAL OF 4 COURSES
     Route: 065
     Dates: start: 20071119, end: 20100603
  15. BISOPROLOL [Concomitant]
     Dosage: REPORTED AS BISOPRLOL, ALSO FOR HYPERTENSION
     Route: 048
  16. CODEINE [Concomitant]
  17. OMEPRAZOLE [Concomitant]
     Indication: DYSPEPSIA
     Route: 048
  18. THYROXINE [Concomitant]
     Route: 048
  19. METHOTREXATE [Concomitant]
  20. CO-CODAMOL [Concomitant]
     Indication: PAIN
     Dosage: 30/500
     Route: 048
  21. PREDNISOLONE [Concomitant]
  22. RADIOACTIVE IODINE [Concomitant]

REACTIONS (6)
  - NECK PAIN [None]
  - DRUG RESISTANCE [None]
  - RASH [None]
  - POSTERIOR REVERSIBLE ENCEPHALOPATHY SYNDROME [None]
  - STAPHYLOCOCCAL BACTERAEMIA [None]
  - SEPSIS [None]
